FAERS Safety Report 7359731-6 (Version None)
Quarter: 2011Q1

REPORT INFORMATION
  Report Type: 
  Country: None (occurrence: None)
  Receive Date: 20110317
  Receipt Date: 20100921
  Transmission Date: 20110831
  Serious: Yes (Hospitalization, Other)
  Sender: FDA-Public Use
  Company Number: US-BAYER-200935823NA

PATIENT
  Sex: Female
  Weight: 81 kg

DRUGS (7)
  1. UNCODEABLE ^UNCLASSIFIABLE^ [Concomitant]
  2. YASMIN [Suspect]
     Indication: PRODUCT USED FOR UNKNOWN INDICATION
     Dosage: UNK
     Dates: start: 20070101, end: 20090101
  3. MOTRIN [Concomitant]
     Indication: PAIN
  4. ALEVE-D SINUS + COLD [Concomitant]
  5. MULTIVITAMIN PREPARATION + MINERAL SUPPLEMENT [Concomitant]
  6. YAZ [Suspect]
     Indication: PRODUCT USED FOR UNKNOWN INDICATION
     Dosage: 1 DF (DAILY DOSE), QD, ORAL
     Route: 048
     Dates: start: 20060101
  7. ADVIL LIQUI-GELS [Concomitant]
     Indication: PAIN

REACTIONS (5)
  - CHOLECYSTITIS CHRONIC [None]
  - CHOLELITHIASIS [None]
  - PAIN [None]
  - GALLBLADDER INJURY [None]
  - GALLBLADDER CHOLESTEROLOSIS [None]
